FAERS Safety Report 9460519 (Version 1)
Quarter: 2013Q3

REPORT INFORMATION
  Report Type: Spontaneous
  Country: JP (occurrence: JP)
  Receive Date: 20130815
  Receipt Date: 20130815
  Transmission Date: 20140515
  Serious: No
  Sender: FDA-Public Use
  Company Number: JP-009507513-1307JPN005556

PATIENT
  Age: 64 Year
  Sex: Female

DRUGS (1)
  1. TOREMIFENE CITRATE [Suspect]
     Indication: BREAST CANCER RECURRENT
     Dosage: DAILY DOSE 120 MG
     Route: 048
     Dates: start: 201305, end: 20130625

REACTIONS (2)
  - Alanine aminotransferase increased [Recovered/Resolved]
  - Aspartate aminotransferase increased [Recovered/Resolved]
